FAERS Safety Report 8394968-9 (Version None)
Quarter: 2012Q2

REPORT INFORMATION
  Report Type: 
  Country: None (occurrence: None)
  Receive Date: 20120530
  Receipt Date: 20120202
  Transmission Date: 20120825
  Serious: No
  Sender: FDA-Public Use
  Company Number: US-GLAXOSMITHKLINE-A0964841A

PATIENT
  Age: 4 Year
  Sex: Male
  Weight: 16.6 kg

DRUGS (2)
  1. TRACLEER [Concomitant]
     Dosage: 31.25MG TWICE PER DAY
  2. FLOLAN [Suspect]
     Indication: PULMONARY HYPERTENSION
     Dosage: 90NGKM UNKNOWN
     Dates: start: 20080718

REACTIONS (2)
  - VOMITING [None]
  - HEADACHE [None]
